FAERS Safety Report 7682395-9 (Version None)
Quarter: 2011Q3

REPORT INFORMATION
  Report Type: 
  Country: None (occurrence: None)
  Receive Date: 20110809
  Receipt Date: 20110726
  Transmission Date: 20111222
  Serious: Yes (Other)
  Sender: FDA-Public Use
  Company Number: 2011170336

PATIENT
  Age: 61 Year
  Sex: Male

DRUGS (5)
  1. INSULIN GLULISINE [Concomitant]
  2. LANTUS [Concomitant]
  3. FRAGMIN [Suspect]
     Dosage: 0.2 ML, 1X/DAY, SUBCUTANEOUS
     Route: 058
     Dates: start: 20110331, end: 20110430
  4. METFORMIN [Concomitant]
  5. SIMVASTATIN [Concomitant]

REACTIONS (1)
  - BLOOD GLUCOSE INCREASED [None]
